FAERS Safety Report 10766484 (Version 1)
Quarter: 2015Q1

REPORT INFORMATION
  Report Type: Report from Study
  Country: US (occurrence: US)
  Receive Date: 20150205
  Receipt Date: 20150205
  Transmission Date: 20150721
  Serious: Yes (Other)
  Sender: FDA-Public Use
  Company Number: US-SA-2014SA001259

PATIENT
  Age: 54 Year
  Sex: Female

DRUGS (4)
  1. WELCHOL [Concomitant]
     Active Substance: COLESEVELAM HYDROCHLORIDE
     Indication: CHOLECYSTECTOMY
  2. NITROFURANTOIN. [Concomitant]
     Active Substance: NITROFURANTOIN
     Indication: INFECTION PROPHYLAXIS
     Dates: start: 2007
  3. AUBAGIO [Suspect]
     Active Substance: TERIFLUNOMIDE
     Indication: MULTIPLE SCLEROSIS
     Route: 048
     Dates: start: 20131217, end: 20141216
  4. VITAMIN D3 [Concomitant]
     Active Substance: CHOLECALCIFEROL

REACTIONS (12)
  - Nausea [Recovered/Resolved]
  - Diarrhoea [Not Recovered/Not Resolved]
  - Walking aid user [Not Recovered/Not Resolved]
  - Stress [Unknown]
  - Malaise [Unknown]
  - Ear infection [Unknown]
  - Defaecation urgency [Recovered/Resolved]
  - Muscle spasms [Recovered/Resolved]
  - Muscular weakness [Unknown]
  - Product blister packaging issue [Unknown]
  - Nervousness [Unknown]
  - Insomnia [Unknown]

NARRATIVE: CASE EVENT DATE: 2014
